FAERS Safety Report 5212753-3 (Version None)
Quarter: 2006Q4

REPORT INFORMATION
  Report Type: 
  Country: None (occurrence: None)
  Receive Date: 20061115
  Receipt Date: 20060703
  Transmission Date: 20070319
  Serious: No
  Sender: FDA-Public Use
  Company Number: 200610881BWH

PATIENT
  Age: 76 Year
  Sex: Male
  Weight: 56.6996 kg

DRUGS (6)
  1. NEXAVAR [Suspect]
     Indication: NEOPLASM MALIGNANT
     Dosage: 400 MG, BID; ORAL
     Route: 048
     Dates: start: 20051215
  2. NEXAVAR [Suspect]
     Indication: RENAL CELL CARCINOMA STAGE UNSPECIFIED
     Dosage: 400 MG, BID; ORAL
     Route: 048
     Dates: start: 20051215
  3. COUMADIN [Concomitant]
  4. FLOMAX [Concomitant]
  5. VITAMINS [Concomitant]
  6. ZESTRIL [Concomitant]

REACTIONS (12)
  - ANOREXIA [None]
  - COUGH [None]
  - DIARRHOEA HAEMORRHAGIC [None]
  - DRY SKIN [None]
  - FATIGUE [None]
  - FEELING HOT AND COLD [None]
  - HAEMORRHAGE [None]
  - MYALGIA [None]
  - NAUSEA [None]
  - PAIN OF SKIN [None]
  - PALMAR-PLANTAR ERYTHRODYSAESTHESIA SYNDROME [None]
  - SLEEP DISORDER [None]
